FAERS Safety Report 13891903 (Version 5)
Quarter: 2019Q1

REPORT INFORMATION
  Report Type: Spontaneous
  Country: US (occurrence: US)
  Receive Date: 20170822
  Receipt Date: 20190109
  Transmission Date: 20190417
  Serious: No
  Sender: FDA-Public Use
  Company Number: US-PFIZER INC-2017360445

PATIENT
  Age: 72 Year
  Sex: Male
  Weight: 65.76 kg

DRUGS (21)
  1. GABAPENTIN. [Concomitant]
     Active Substance: GABAPENTIN
     Dosage: 300 MG, 3X/DAY [MORNING NOON AND NIGHT, 3 PILLS A DAY]
  2. MAGNESIUM OXIDE. [Concomitant]
     Active Substance: MAGNESIUM OXIDE
     Dosage: 400 MG, 2X/DAY [TWO A DAY ONE IN AM ONE AT NOON]
     Route: 048
  3. RAPAMUNE [Suspect]
     Active Substance: SIROLIMUS
     Indication: TRANSPLANT REJECTION
     Dosage: 4 MG, DAILY
     Route: 048
  4. DAPSONE. [Concomitant]
     Active Substance: DAPSONE
     Dosage: 100 MG, 1X/DAY [EVERY MORNING]
     Route: 048
  5. TRAMADOL. [Concomitant]
     Active Substance: TRAMADOL
     Dosage: 50 MG, AS NEEDED [ONE A DAY BY MOUTH, EVERY 6 HOURS AS NEEDED]
     Route: 048
  6. RAPAMUNE [Suspect]
     Active Substance: SIROLIMUS
     Dosage: UNK
  7. TRAZODONE [Concomitant]
     Active Substance: TRAZODONE HYDROCHLORIDE
     Dosage: 100 MG, DAILY
     Route: 048
  8. PRAVASTATIN SODIUM. [Concomitant]
     Active Substance: PRAVASTATIN SODIUM
     Dosage: 80 MG, 1X/DAY [EVERY NIGHT]
     Route: 048
  9. ROPINIROLE HCL [Concomitant]
     Active Substance: ROPINIROLE HYDROCHLORIDE
     Indication: RESTLESS LEGS SYNDROME
     Dosage: 0.25 MG, 1X/DAY
  10. OYSTER SHELL WITH VITAMIN D [Concomitant]
     Dosage: UNK UNK, 2X/DAY [500/200TB TWO EVERYDAY ONE IN AM ONE AT NOON]
  11. PRAVASTATIN. [Concomitant]
     Active Substance: PRAVASTATIN
     Dosage: UNK
  12. RAPAMUNE [Suspect]
     Active Substance: SIROLIMUS
     Indication: PROPHYLAXIS AGAINST TRANSPLANT REJECTION
     Dosage: 5 MG, DAILY
     Route: 048
  13. CALCIUM WITH VITAMIN D [Concomitant]
     Active Substance: CALCIUM\VITAMIN D
     Dosage: UNK
  14. POTASSIUM CHLORIDE. [Concomitant]
     Active Substance: POTASSIUM CHLORIDE
     Dosage: 20 MEQ, 1X/DAY [ONE EVERY NIGHT]
  15. DOCUSATE SODIUM. [Concomitant]
     Active Substance: DOCUSATE SODIUM
     Indication: LAXATIVE SUPPORTIVE CARE
     Dosage: 100 MG, 1X/DAY [EVERY NIGHT]
     Route: 048
  16. EZETIMIBE. [Concomitant]
     Active Substance: EZETIMIBE
     Dosage: 10 MG, ALTERNATE DAY [EVERY OTHER DAY]
     Route: 048
  17. RAPAMUNE [Suspect]
     Active Substance: SIROLIMUS
     Dosage: UNK
  18. GABAPENTIN. [Concomitant]
     Active Substance: GABAPENTIN
     Dosage: 5 MG, UNK
  19. COLACE [Concomitant]
     Active Substance: DOCUSATE SODIUM
     Dosage: UNK
  20. ZETIA [Concomitant]
     Active Substance: EZETIMIBE
     Dosage: UNK
  21. TEMAZEPAM. [Concomitant]
     Active Substance: TEMAZEPAM
     Indication: SLEEP DISORDER
     Dosage: 15 MG, 1X/DAY [EVERY NIGHT]
     Route: 048

REACTIONS (10)
  - Nervousness [Unknown]
  - Peripheral swelling [Not Recovered/Not Resolved]
  - Disorientation [Recovered/Resolved]
  - Chest discomfort [Unknown]
  - Dyspnoea [Unknown]
  - Sluggishness [Unknown]
  - Anxiety [Not Recovered/Not Resolved]
  - Depression [Unknown]
  - Joint swelling [Unknown]
  - Palpitations [Unknown]
